FAERS Safety Report 14772388 (Version 1)
Quarter: 2018Q2

REPORT INFORMATION
  Report Type: Spontaneous
  Country: US (occurrence: US)
  Receive Date: 20180418
  Receipt Date: 20180418
  Transmission Date: 20180711
  Serious: Yes (Life-Threatening, Hospitalization, Other)
  Sender: FDA-Public Use
  Company Number: US-JNJFOC-20180416341

PATIENT
  Age: 36 Year
  Sex: Male

DRUGS (2)
  1. LOPERAMIDE [Suspect]
     Active Substance: LOPERAMIDE
     Route: 048
  2. LOPERAMIDE [Suspect]
     Active Substance: LOPERAMIDE
     Indication: SUBSTANCE USE
     Dosage: 30-200 TABLETS
     Route: 048

REACTIONS (7)
  - Ventricular extrasystoles [Unknown]
  - Serotonin syndrome [Recovered/Resolved]
  - Electrocardiogram QT prolonged [Unknown]
  - Drug abuse [Unknown]
  - Cardiac arrest [Recovered/Resolved]
  - Electrocardiogram QRS complex prolonged [Unknown]
  - Intentional overdose [Unknown]
